FAERS Safety Report 4849267-6 (Version None)
Quarter: 2005Q4

REPORT INFORMATION
  Report Type: 
  Country: None (occurrence: None)
  Receive Date: 20051207
  Receipt Date: 20051128
  Transmission Date: 20060501
  Serious: Yes (Other)
  Sender: FDA-Public Use
  Company Number: KII-2005-0019969

PATIENT
  Age: 56 Year
  Sex: Male

DRUGS (3)
  1. OXYCONTIN [Suspect]
     Dosage: ORAL
     Route: 048
  2. ETHANOL (ETHANOL) [Suspect]
     Dosage: ORAL
     Route: 048
  3. COCAINE (COCAINE) [Suspect]
     Indication: INTENTIONAL DRUG MISUSE

REACTIONS (11)
  - ALCOHOL USE [None]
  - COMA [None]
  - DEPRESSED LEVEL OF CONSCIOUSNESS [None]
  - DRUG SCREEN POSITIVE [None]
  - DYSPNOEA [None]
  - MIOSIS [None]
  - POLYSUBSTANCE ABUSE [None]
  - PUPILLARY REFLEX IMPAIRED [None]
  - RESPIRATION ABNORMAL [None]
  - SINUS TACHYCARDIA [None]
  - SOMNOLENCE [None]
